FAERS Safety Report 4363990-1 (Version None)
Quarter: 2004Q2

REPORT INFORMATION
  Report Type: 
  Country: None (occurrence: None)
  Receive Date: 20040520
  Receipt Date: 20040520
  Transmission Date: 20050107
  Serious: Yes (Life-Threatening, Hospitalization)
  Sender: FDA-Public Use
  Company Number: None

PATIENT
  Age: 45 Year
  Sex: Female
  Weight: 144.1 kg

DRUGS (1)
  1. LITHIUM 300 MG [Suspect]
     Indication: BIPOLAR DISORDER
     Dosage: 900 MG QD ORAL
     Route: 048
     Dates: start: 20000110, end: 20040305

REACTIONS (6)
  - BILIARY COLIC [None]
  - CONFUSIONAL STATE [None]
  - HYPERNATRAEMIA [None]
  - MARKEDLY REDUCED DIETARY INTAKE [None]
  - NEPHROGENIC DIABETES INSIPIDUS [None]
  - WHITE BLOOD CELL COUNT INCREASED [None]
